FAERS Safety Report 20920309 (Version 1)
Quarter: 2022Q2

REPORT INFORMATION
  Report Type: Spontaneous
  Country: US (occurrence: None)
  Receive Date: 20220604
  Receipt Date: 20220604
  Transmission Date: 20220720
  Serious: Yes (Other)
  Sender: FDA-Public Use
  Company Number: None

PATIENT
  Age: 78 Year
  Sex: Female
  Weight: 67.5 kg

DRUGS (24)
  1. NOVOLOG [Suspect]
     Active Substance: INSULIN ASPART
     Indication: Type 2 diabetes mellitus
     Dosage: OTHER QUANTITY : 10 7 U FOR 15 CARBS;?FREQUENCY : AS NEEDED;?OTHER ROUTE : INJECTION INTO BELLY;?
     Route: 050
     Dates: start: 20220524, end: 20220527
  2. INSULIN ASPART [Suspect]
     Active Substance: INSULIN ASPART
     Indication: Type 1 diabetes mellitus
     Dosage: OTHER QUANTITY : 10 7 U FOR 15 CARBS;?FREQUENCY : AS NEEDED;?OTHER ROUTE : INJECTION INTO BELLY;?
     Route: 050
     Dates: start: 20220328, end: 20220331
  3. LISINOPRIL [Concomitant]
     Active Substance: LISINOPRIL
  4. METOPROLOL [Concomitant]
     Active Substance: METOPROLOL
  5. DOXYCYCLINE HYCLATE [Concomitant]
     Active Substance: DOXYCYCLINE HYCLATE
  6. CLOPIDOGREL [Concomitant]
     Active Substance: CLOPIDOGREL BISULFATE
  7. ASPIRIN [Concomitant]
     Active Substance: ASPIRIN
  8. Prednizone [Concomitant]
  9. FUROSEMIDE [Concomitant]
     Active Substance: FUROSEMIDE
  10. FOLIC ACID [Concomitant]
     Active Substance: FOLIC ACID
  11. ATORVASTATIN [Concomitant]
     Active Substance: ATORVASTATIN
  12. Isosorbide ER Monoiter [Concomitant]
  13. NITROGLYCERIN [Concomitant]
     Active Substance: NITROGLYCERIN
  14. TRAMADOL [Concomitant]
     Active Substance: TRAMADOL
  15. ALENDRONATE SODIUM [Concomitant]
     Active Substance: ALENDRONATE SODIUM
  16. METHOTREXATE [Concomitant]
     Active Substance: METHOTREXATE
  17. INSULIN ASPART [Concomitant]
     Active Substance: INSULIN ASPART
  18. D3 (Turmeric + Ginger + Bio Perine) [Concomitant]
  19. MAGNESIUM [Concomitant]
     Active Substance: MAGNESIUM
  20. FISH OIL [Concomitant]
     Active Substance: FISH OIL
  21. CANNABIDIOL\HERBALS [Concomitant]
     Active Substance: CANNABIDIOL\HERBALS
  22. CANNABIS SATIVA SEED OIL\HERBALS [Concomitant]
     Active Substance: CANNABIS SATIVA SEED OIL\HERBALS
  23. DEVICE\INSULIN NOS [Concomitant]
     Active Substance: DEVICE\INSULIN NOS
  24. DEXCOM TRANSMITTER [Concomitant]

REACTIONS (9)
  - Blood glucose increased [None]
  - Vision blurred [None]
  - Visual impairment [None]
  - Tremor [None]
  - Gait inability [None]
  - Product quality issue [None]
  - Product quality issue [None]
  - Recalled product administered [None]
  - Manufacturing product storage issue [None]
